FAERS Safety Report 25099187 (Version 1)
Quarter: 2025Q1

REPORT INFORMATION
  Report Type: Spontaneous
  Country: US (occurrence: US)
  Receive Date: 20250320
  Receipt Date: 20250320
  Transmission Date: 20250408
  Serious: No
  Sender: MICRO LABS
  Company Number: US-862174955-ML2025-01318

PATIENT
  Age: 78 Year
  Sex: Female
  Weight: 61 kg

DRUGS (1)
  1. AMOXICILLIN\CLAVULANATE POTASSIUM [Suspect]
     Active Substance: AMOXICILLIN\CLAVULANATE POTASSIUM
     Indication: Sinusitis
     Dosage: STRENGTH: 875/125MG
     Dates: start: 20250307, end: 20250310

REACTIONS (4)
  - Asthenia [Unknown]
  - Abdominal discomfort [Unknown]
  - Dizziness [Unknown]
  - Diarrhoea [Unknown]

NARRATIVE: CASE EVENT DATE: 20250301
